FAERS Safety Report 4537252-3 (Version None)
Quarter: 2004Q4

REPORT INFORMATION
  Report Type: 
  Country: None (occurrence: None)
  Receive Date: 20041221
  Receipt Date: 20041207
  Transmission Date: 20050328
  Serious: Yes (Other)
  Sender: FDA-Public Use
  Company Number: 430003E04USA

PATIENT
  Age: 46 Year
  Sex: Female
  Weight: 45.36 kg

DRUGS (2)
  1. NOVANTRONE [Suspect]
     Indication: MULTIPLE SCLEROSIS
     Dosage: 12 MG/M2, 1 IN 3 MONTHS, INTRAVENOUS
     Route: 042
     Dates: start: 20020820, end: 20040524
  2. AMANTADINE [Concomitant]

REACTIONS (2)
  - EJECTION FRACTION DECREASED [None]
  - VENTRICULAR DYSKINESIA [None]
